FAERS Safety Report 25765970 (Version 1)
Quarter: 2025Q3

REPORT INFORMATION
  Report Type: Spontaneous
  Country: US (occurrence: US)
  Receive Date: 20250905
  Receipt Date: 20250905
  Transmission Date: 20251020
  Serious: No
  Sender: DOMPE FARMACEUTICI
  Company Number: US-FARMAPROD-202407-2694

PATIENT
  Sex: Female

DRUGS (12)
  1. OXERVATE [Suspect]
     Active Substance: CENEGERMIN-BKBJ
     Indication: Dry eye
     Route: 047
     Dates: start: 20240719
  2. OXERVATE [Suspect]
     Active Substance: CENEGERMIN-BKBJ
     Indication: Punctate keratitis
  3. TYLENOL [Concomitant]
     Active Substance: ACETAMINOPHEN
  4. CLOBETASOL PROPIONATE [Concomitant]
     Active Substance: CLOBETASOL PROPIONATE
  5. VYZULTA [Concomitant]
     Active Substance: LATANOPROSTENE BUNOD
  6. RESTASIS [Concomitant]
     Active Substance: CYCLOSPORINE
  7. GABAPENTIN [Concomitant]
     Active Substance: GABAPENTIN
  8. ALPRAZOLAM [Concomitant]
     Active Substance: ALPRAZOLAM
  9. VITAMIN D2 [Concomitant]
     Active Substance: ERGOCALCIFEROL
  10. BYSTOLIC [Concomitant]
     Active Substance: NEBIVOLOL HYDROCHLORIDE
  11. ANASTROZOLE [Concomitant]
     Active Substance: ANASTROZOLE
  12. SYNTHROID [Concomitant]
     Active Substance: LEVOTHYROXINE SODIUM

REACTIONS (3)
  - Eye pain [Unknown]
  - Eye irritation [Unknown]
  - Eyelid pain [Unknown]
